FAERS Safety Report 4355312-7 (Version None)
Quarter: 2004Q2

REPORT INFORMATION
  Report Type: 
  Country: None (occurrence: None)
  Receive Date: 20040504
  Receipt Date: 20030519
  Transmission Date: 20050107
  Serious: No
  Sender: FDA-Public Use
  Company Number: 200300848

PATIENT
  Sex: Male

DRUGS (1)
  1. TYLENOL [Suspect]
     Indication: ACCIDENTAL EXPOSURE
     Dosage: 700 MG, ONCE, PO
     Route: 048

REACTIONS (2)
  - ACCIDENTAL OVERDOSE [None]
  - VOMITING [None]
